FAERS Safety Report 4606905-0 (Version None)
Quarter: 2005Q1

REPORT INFORMATION
  Report Type: 
  Country: None (occurrence: None)
  Receive Date: 20050314
  Receipt Date: 20050309
  Transmission Date: 20050727
  Serious: Yes (Hospitalization)
  Sender: FDA-Public Use
  Company Number: PHBS2005BR03415

PATIENT
  Age: 40 Year
  Sex: Female

DRUGS (3)
  1. REMERON [Concomitant]
     Indication: AGGRESSION
     Dosage: 30 MG, QD
     Route: 048
  2. ALPRAZOLAM [Concomitant]
     Indication: AGGRESSION
     Dosage: UNK, UNK
     Route: 048
  3. TRILEPTAL [Suspect]
     Indication: AGGRESSION
     Dosage: 600 MG/D
     Route: 048

REACTIONS (3)
  - GANGLION [None]
  - PYREXIA [None]
  - RUBELLA [None]
